FAERS Safety Report 5927429-4 (Version None)
Quarter: 2008Q4

REPORT INFORMATION
  Report Type: 
  Country: None (occurrence: None)
  Receive Date: 20081022
  Receipt Date: 20081022
  Transmission Date: 20090506
  Serious: Yes (Hospitalization)
  Sender: FDA-Public Use
  Company Number: None

PATIENT
  Sex: Male

DRUGS (1)
  1. HUMIRA [Suspect]
     Indication: ANKYLOSING SPONDYLITIS
     Dosage: 40MG/0.8ML EVERY OTHER WEEK SUB Q
     Route: 058
     Dates: start: 20070801, end: 20080901

REACTIONS (3)
  - ACID FAST BACILLI INFECTION [None]
  - ARTHRALGIA [None]
  - JOINT SWELLING [None]
